FAERS Safety Report 16552483 (Version 1)
Quarter: 2019Q3

REPORT INFORMATION
  Report Type: Spontaneous
  Country: US (occurrence: US)
  Receive Date: 20190710
  Receipt Date: 20190710
  Transmission Date: 20191004
  Serious: No
  Sender: FDA-Public Use
  Company Number: US-GALDERMA-US19018936

PATIENT
  Age: 27 Year
  Sex: Female

DRUGS (3)
  1. PROACTIV MD DAILY OIL CONTROL SPF 30 [Suspect]
     Active Substance: AVOBENZONE\OCTISALATE\OCTOCRYLENE
     Indication: ACTINOMYCOTIC ABDOMINAL INFECTION
     Route: 061
     Dates: start: 20190316, end: 201903
  2. PROACTIV MD DEEP CLEANSING FACE WASH [Concomitant]
     Active Substance: COSMETICS
     Indication: ACTINOMYCOTIC ABDOMINAL INFECTION
     Route: 061
     Dates: start: 20190316, end: 201903
  3. PROACTIV MD ADAPALENE ACNE TREATMENT [Suspect]
     Active Substance: ADAPALENE
     Indication: ACTINOMYCOTIC ABDOMINAL INFECTION
     Dosage: 0.1%
     Route: 061
     Dates: start: 20190316, end: 201903

REACTIONS (1)
  - Skin burning sensation [Not Recovered/Not Resolved]

NARRATIVE: CASE EVENT DATE: 20190320
